FAERS Safety Report 20101285 (Version 1)
Quarter: 2021Q4

REPORT INFORMATION
  Report Type: Spontaneous
  Country: US (occurrence: None)
  Receive Date: 20211122
  Receipt Date: 20211122
  Transmission Date: 20220303
  Serious: Yes (Hospitalization)
  Sender: FDA-Public Use
  Company Number: None

PATIENT
  Sex: Female

DRUGS (2)
  1. NORTHERA [Suspect]
     Active Substance: DROXIDOPA
     Indication: Hypotension
     Dosage: FREQUENCY : 3 TIMES A DAY;?
     Route: 048
  2. NORTHERA [Concomitant]
     Active Substance: DROXIDOPA

REACTIONS (2)
  - Haematochezia [None]
  - Blood urine present [None]
